FAERS Safety Report 7606447-4 (Version None)
Quarter: 2011Q3

REPORT INFORMATION
  Report Type: 
  Country: None (occurrence: None)
  Receive Date: 20110705
  Receipt Date: 20110621
  Transmission Date: 20111222
  Serious: Yes (Hospitalization)
  Sender: FDA-Public Use
  Company Number: B0729177A

PATIENT
  Age: 27 Year
  Sex: Female

DRUGS (7)
  1. SEVOFLURANE [Suspect]
  2. LIDOCAINE HCL [Suspect]
  3. OXYGEN (FORMULATION UNKNOWN) (OXYGEN) [Suspect]
  4. FLECAINIDE ACETATE [Suspect]
     Dosage: 150 MG /THREE TIMES PER DAY / ORAL
     Route: 048
  5. ROCURONIUM BROMIDE [Suspect]
  6. DIGOXIN [Suspect]
     Indication: ATRIAL FIBRILLATION
     Dosage: /ORAL
     Route: 048
  7. CARDIOPULMONARY RESUSCIT. (FORMULATION UNKNOWN) (CARDIOPULMONARY RESUS [Suspect]

REACTIONS (11)
  - CAESAREAN SECTION [None]
  - LOSS OF CONSCIOUSNESS [None]
  - TOXICITY TO VARIOUS AGENTS [None]
  - OVERDOSE [None]
  - CARDIOACTIVE DRUG LEVEL BELOW THERAPEUTIC [None]
  - BLOOD PRESSURE DECREASED [None]
  - CIRCULATORY COLLAPSE [None]
  - MATERNAL EXPOSURE DURING PREGNANCY [None]
  - ATRIOVENTRICULAR BLOCK FIRST DEGREE [None]
  - ELECTROCARDIOGRAM QRS COMPLEX PROLONGED [None]
  - VENTRICULAR TACHYCARDIA [None]
